FAERS Safety Report 7852056-1 (Version None)
Quarter: 2011Q4

REPORT INFORMATION
  Report Type: 
  Country: None (occurrence: None)
  Receive Date: 20111026
  Receipt Date: 20111018
  Transmission Date: 20120403
  Serious: Yes (Other)
  Sender: FDA-Public Use
  Company Number: US-JNJFOC-20111007779

PATIENT
  Sex: Female
  Weight: 56.7 kg

DRUGS (1)
  1. ORTHO EVRA [Suspect]
     Indication: CONTRACEPTION
     Route: 062
     Dates: start: 20100101

REACTIONS (3)
  - VAGINAL HAEMORRHAGE [None]
  - ANAEMIA [None]
  - DRUG DOSE OMISSION [None]
